FAERS Safety Report 15516854 (Version 3)
Quarter: 2018Q4

REPORT INFORMATION
  Report Type: Spontaneous
  Country: FR (occurrence: FR)
  Receive Date: 20181017
  Receipt Date: 20181030
  Transmission Date: 20190205
  Serious: Yes (Death, Other)
  Sender: FDA-Public Use
  Company Number: FR-AUROBINDO-AUR-APL-2018-050575

PATIENT
  Age: 61 Year
  Sex: Male

DRUGS (13)
  1. VORICONAZOLE. [Suspect]
     Active Substance: VORICONAZOLE
     Indication: MUCORMYCOSIS
  2. PIPERACILLIN AND TAZOBACTAM [Concomitant]
     Active Substance: PIPERACILLIN SODIUM\TAZOBACTAM SODIUM
     Indication: FEBRILE BONE MARROW APLASIA
     Dosage: UNK
     Route: 065
     Dates: start: 201609
  3. POSACONAZOLE [Suspect]
     Active Substance: POSACONAZOLE
     Indication: EVIDENCE BASED TREATMENT
     Dosage: 400 MILLIGRAM, TWO TIMES A DAY
     Route: 065
     Dates: start: 201610
  4. POSACONAZOLE [Suspect]
     Active Substance: POSACONAZOLE
     Indication: ANTIFUNGAL TREATMENT
  5. AMPHOTERICIN B. [Suspect]
     Active Substance: AMPHOTERICIN B
     Indication: MUCORMYCOSIS
  6. FLUDARABINE [Concomitant]
     Active Substance: FLUDARABINE PHOSPHATE
     Indication: CHRONIC LYMPHOCYTIC LEUKAEMIA
     Dosage: CYCLIC (FOURTH CHEMOTHERAPY CYCLE) () ; CYCLICAL
     Route: 065
     Dates: start: 20160906
  7. VORICONAZOLE. [Suspect]
     Active Substance: VORICONAZOLE
     Indication: EVIDENCE BASED TREATMENT
  8. AMPHOTERICIN B. [Suspect]
     Active Substance: AMPHOTERICIN B
     Indication: EVIDENCE BASED TREATMENT
     Dosage: 5 MG/KG, UNK
     Route: 065
     Dates: start: 201610
  9. CYCLOPHOSPHAMIDE. [Concomitant]
     Active Substance: CYCLOPHOSPHAMIDE
     Indication: CHRONIC LYMPHOCYTIC LEUKAEMIA
     Dosage: CYCLIC (FOURTH CHEMOTHERAPY CYCLE) () ; CYCLICAL
     Route: 065
     Dates: start: 20160906
  10. VORICONAZOLE. [Suspect]
     Active Substance: VORICONAZOLE
     Indication: ANTIFUNGAL TREATMENT
     Dosage: UNK
     Route: 065
     Dates: start: 201610
  11. POSACONAZOLE [Suspect]
     Active Substance: POSACONAZOLE
     Indication: MUCORMYCOSIS
  12. AMPHOTERICIN B. [Suspect]
     Active Substance: AMPHOTERICIN B
     Indication: ANTIFUNGAL TREATMENT
     Dosage: 10 MG/KG, UNK (INCREASED DOSE)
     Route: 065
     Dates: start: 201610
  13. RITUXIMAB. [Concomitant]
     Active Substance: RITUXIMAB
     Indication: CHRONIC LYMPHOCYTIC LEUKAEMIA
     Dosage: CYCLIC (FOURTH CHEMOTHERAPY)CYCLICAL
     Route: 065
     Dates: start: 20160906

REACTIONS (6)
  - Drug ineffective [Fatal]
  - Mucormycosis [Fatal]
  - Respiratory failure [Fatal]
  - Febrile bone marrow aplasia [Fatal]
  - Hypotension [Unknown]
  - Acidosis [Unknown]

NARRATIVE: CASE EVENT DATE: 2016
